FAERS Safety Report 9097334 (Version 3)
Quarter: 2013Q3

REPORT INFORMATION
  Report Type: Spontaneous
  Country: US (occurrence: US)
  Receive Date: 20130212
  Receipt Date: 20130718
  Transmission Date: 20140515
  Serious: Yes (Hospitalization)
  Sender: FDA-Public Use
  Company Number: US-BAYER-2013-018257

PATIENT
  Age: 45 Year
  Sex: Female
  Weight: 79.37 kg

DRUGS (8)
  1. YASMIN [Suspect]
     Indication: CONTRACEPTION
     Dosage: UNK
     Dates: start: 200109, end: 200110
  2. ZANTAC [Concomitant]
  3. LEVOXYL [Concomitant]
     Indication: HYPOTHYROIDISM
     Dosage: 136 MG, PER DAY
     Dates: start: 1986
  4. ACIPHEX [Concomitant]
  5. PROZAC [Concomitant]
     Indication: DEPRESSION
  6. TRAZODONE [Concomitant]
     Indication: SLEEP DISORDER THERAPY
     Dosage: UNK, PRN
  7. NITROGLYCERIN [Concomitant]
  8. TYLENOL [Concomitant]

REACTIONS (7)
  - Pulmonary embolism [Recovered/Resolved]
  - Injury [Recovered/Resolved]
  - Pain [Recovered/Resolved]
  - Emotional distress [None]
  - General physical health deterioration [Recovered/Resolved]
  - Anxiety [None]
  - Pain [None]
